FAERS Safety Report 6435078-7 (Version None)
Quarter: 2009Q4

REPORT INFORMATION
  Report Type: 
  Country: None (occurrence: None)
  Receive Date: 20091109
  Receipt Date: 20091109
  Transmission Date: 20100525
  Serious: Yes (Other)
  Sender: FDA-Public Use
  Company Number: None

PATIENT
  Sex: Male
  Weight: 8.1647 kg

DRUGS (1)
  1. TAMIFLU [Suspect]
     Indication: H1N1 INFLUENZA
     Dosage: 7ML TWICE DAILY PO
     Route: 048
     Dates: start: 20091101, end: 20091102

REACTIONS (7)
  - DIARRHOEA [None]
  - DISTURBANCE IN ATTENTION [None]
  - LETHARGY [None]
  - MEDICATION ERROR [None]
  - OVERDOSE [None]
  - SOMNOLENCE [None]
  - VOMITING [None]
